FAERS Safety Report 5093923-4 (Version None)
Quarter: 2006Q3

REPORT INFORMATION
  Report Type: 
  Country: None (occurrence: None)
  Receive Date: 20060831
  Receipt Date: 20060825
  Transmission Date: 20061208
  Serious: Yes (Hospitalization, Other)
  Sender: FDA-Public Use
  Company Number: US-AVENTIS-200617197US

PATIENT
  Age: 78 Year
  Sex: Female

DRUGS (9)
  1. CLAFORAN [Suspect]
     Route: 042
     Dates: start: 20060710, end: 20060710
  2. PLAVIX [Concomitant]
     Dosage: DOSE: UNKNOWN
  3. ARICEPT [Concomitant]
     Dosage: DOSE: UNKNOWN
  4. NAMENDA [Concomitant]
     Dosage: DOSE: UNKNOWN
  5. COREG [Concomitant]
     Dosage: DOSE: UNKNOWN
  6. ALTACE [Concomitant]
     Dosage: DOSE: UNKNOWN
  7. PLETAL [Concomitant]
     Dosage: DOSE: UNKNOWN
  8. NORVASC [Concomitant]
     Dosage: DOSE: UNKNOWN
  9. RENAGEL [Concomitant]
     Dosage: DOSE: UNKNOWN

REACTIONS (5)
  - HAEMATOCRIT DECREASED [None]
  - HAEMOGLOBIN DECREASED [None]
  - HAEMOLYTIC ANAEMIA [None]
  - HOSPITALISATION [None]
  - METHAEMOGLOBINAEMIA [None]
